FAERS Safety Report 7110199-4 (Version None)
Quarter: 2010Q4

REPORT INFORMATION
  Report Type: 
  Country: None (occurrence: None)
  Receive Date: 20101112
  Receipt Date: 20101027
  Transmission Date: 20110411
  Serious: Yes (Hospitalization)
  Sender: FDA-Public Use
  Company Number: 1-18185324

PATIENT
  Age: 45 Year
  Sex: Male
  Weight: 127.0072 kg

DRUGS (5)
  1. QUININE SULFATE [Suspect]
     Indication: MUSCLE SPASMS
     Dosage: 1 CAPSULE, AT BEDTIME, PRN, ORAL
     Route: 048
     Dates: start: 20030430, end: 20030728
  2. QUININE SULFATE [Suspect]
     Indication: MUSCLE SPASMS
     Dosage: 1-2 CAPSULES, AT BEDTIME, ORAL
     Route: 048
     Dates: start: 20001211
  3. ARTHROTEC (DICLOFENAC AND MISOPROSTOL) [Concomitant]
  4. DIOVAN [Concomitant]
  5. METOPROLOL [Concomitant]

REACTIONS (21)
  - ACNE [None]
  - ANGINA PECTORIS [None]
  - ANXIETY [None]
  - ARTHRALGIA [None]
  - BACK PAIN [None]
  - COMA [None]
  - CONDITION AGGRAVATED [None]
  - FEAR [None]
  - GASTROINTESTINAL DISORDER [None]
  - GASTROINTESTINAL HAEMORRHAGE [None]
  - GRIEF REACTION [None]
  - HEPATIC FAILURE [None]
  - INJURY [None]
  - LIVER DISORDER [None]
  - MUSCLE SPASMS [None]
  - NERVOUSNESS [None]
  - PAIN [None]
  - RENAL FAILURE [None]
  - THROMBOCYTOPENIA [None]
  - UNEVALUABLE EVENT [None]
  - WEIGHT INCREASED [None]
